FAERS Safety Report 9630995 (Version 2)
Quarter: 2013Q4

REPORT INFORMATION
  Report Type: Spontaneous
  Country: JP (occurrence: JP)
  Receive Date: 20131018
  Receipt Date: 20131031
  Transmission Date: 20140711
  Serious: Yes (Hospitalization)
  Sender: FDA-Public Use
  Company Number: JP-SA-2013SA102837

PATIENT
  Age: 80 Year
  Sex: Female

DRUGS (2)
  1. GLIMEPIRIDE [Suspect]
     Indication: DIABETES MELLITUS
     Route: 065
     Dates: start: 201206
  2. GLIMEPIRIDE [Suspect]
     Indication: DIABETES MELLITUS
     Route: 065

REACTIONS (2)
  - Chorea [Recovering/Resolving]
  - Dyskinesia [Recovering/Resolving]
